FAERS Safety Report 25963419 (Version 5)
Quarter: 2025Q4

REPORT INFORMATION
  Report Type: Report from Study
  Country: US (occurrence: US)
  Receive Date: 20251027
  Receipt Date: 20251218
  Transmission Date: 20260117
  Serious: Yes (Other)
  Sender: MALLINCKRODT
  Company Number: US-MALLINCKRODT-MNK202506618

PATIENT
  Age: 52 Year
  Sex: Female
  Weight: 182 kg

DRUGS (1)
  1. CORTICOTROPIN [Suspect]
     Active Substance: CORTICOTROPIN
     Indication: Scleritis
     Dosage: 40 UNITS
     Route: 058
     Dates: start: 20251013

REACTIONS (4)
  - Weight increased [Unknown]
  - Injection site bruising [Recovered/Resolved]
  - Fatigue [Unknown]
  - Injection site pruritus [Not Recovered/Not Resolved]

NARRATIVE: CASE EVENT DATE: 20250101
